FAERS Safety Report 13689185 (Version 2)
Quarter: 2017Q3

REPORT INFORMATION
  Report Type: Spontaneous
  Country: FR (occurrence: FR)
  Receive Date: 20170626
  Receipt Date: 20170922
  Transmission Date: 20171127
  Serious: Yes (Hospitalization)
  Sender: FDA-Public Use
  Company Number: FR-MALLINCKRODT-T201702598

PATIENT
  Age: 41 Year
  Sex: Male

DRUGS (8)
  1. OFIRMEV [Suspect]
     Active Substance: ACETAMINOPHEN
     Indication: GENERAL ANAESTHESIA
     Dosage: 1000 MG
     Route: 042
     Dates: start: 20170524
  2. SUFENTANIL [Suspect]
     Active Substance: SUFENTANIL
     Indication: GENERAL ANAESTHESIA
     Dosage: 10 MICROG
     Route: 042
     Dates: start: 20170524
  3. KETOPROFENE MEDAC [Suspect]
     Active Substance: KETOPROFEN
     Indication: GENERAL ANAESTHESIA
     Dosage: 100 MG
     Route: 042
     Dates: start: 20170524
  4. NEFOPAM HYDROCHLORIDE [Suspect]
     Active Substance: NEFOPAM HYDROCHLORIDE
     Indication: GENERAL ANAESTHESIA
     Dosage: 24 MG
     Route: 042
     Dates: start: 20170524
  5. TOPALGIC [Suspect]
     Active Substance: TRAMADOL HYDROCHLORIDE
     Indication: GENERAL ANAESTHESIA
     Dosage: 100 MG
     Route: 042
     Dates: start: 20170524
  6. MORPHINE [Suspect]
     Active Substance: MORPHINE
     Indication: GENERAL ANAESTHESIA
     Dosage: 5 MG
     Route: 042
     Dates: start: 20170524
  7. DROPERIDOL AGUETTANT [Suspect]
     Active Substance: DROPERIDOL
     Indication: GENERAL ANAESTHESIA
     Dosage: 1.25 MG
     Route: 042
     Dates: start: 20170524
  8. ATRACURIUM HOSPIRA [Suspect]
     Active Substance: ATRACURIUM
     Indication: GENERAL ANAESTHESIA
     Dosage: 20 MG
     Route: 042
     Dates: start: 20170524

REACTIONS (1)
  - Pancreatitis acute [Recovered/Resolved with Sequelae]

NARRATIVE: CASE EVENT DATE: 20170525
